FAERS Safety Report 8087081-1 (Version None)
Quarter: 2012Q1

REPORT INFORMATION
  Report Type: 
  Country: None (occurrence: None)
  Receive Date: 20120128
  Receipt Date: 20110520
  Transmission Date: 20120608
  Serious: No
  Sender: FDA-Public Use
  Company Number: US-ABBOTT-11P-163-0727776-00

PATIENT
  Age: 48 Year
  Sex: Female

DRUGS (11)
  1. ABILIFY [Concomitant]
     Indication: SCHIZOPHRENIA
  2. TRAZODONE HCL [Concomitant]
     Indication: INSOMNIA
  3. ACETAMINOPHEN [Concomitant]
     Indication: PRODUCT USED FOR UNKNOWN INDICATION
  4. HUMIRA [Suspect]
     Indication: PSORIATIC ARTHROPATHY
     Dates: start: 20101201
  5. LEXAPRO [Concomitant]
     Indication: AFFECTIVE DISORDER
  6. PROPRANOLOL [Concomitant]
     Indication: BLOOD PRESSURE
  7. DEPAKOTE [Concomitant]
     Indication: BIPOLAR DISORDER
  8. COGENTIN [Concomitant]
     Indication: PRODUCT USED FOR UNKNOWN INDICATION
  9. FOLIC ACID [Concomitant]
     Indication: PRODUCT USED FOR UNKNOWN INDICATION
  10. METHOTREXATE [Concomitant]
     Indication: PRODUCT USED FOR UNKNOWN INDICATION
  11. FOLIC ACID [Concomitant]

REACTIONS (1)
  - ALOPECIA [None]
